FAERS Safety Report 13331300 (Version 1)
Quarter: 2017Q1

REPORT INFORMATION
  Report Type: Spontaneous
  Country: US (occurrence: US)
  Receive Date: 20170313
  Receipt Date: 20170313
  Transmission Date: 20170428
  Serious: Yes (Other)
  Sender: FDA-Public Use
  Company Number: None

PATIENT
  Age: 88 Year
  Sex: Male

DRUGS (1)
  1. TARCEVA [Suspect]
     Active Substance: ERLOTINIB HYDROCHLORIDE
     Indication: LUNG NEOPLASM MALIGNANT
     Dosage: 2 PILLS 50MG DAILY BY MOUTH
     Route: 048
     Dates: start: 20151221

REACTIONS (3)
  - Diarrhoea [None]
  - Arthralgia [None]
  - Rash [None]

NARRATIVE: CASE EVENT DATE: 20170313
